FAERS Safety Report 5269502-2 (Version None)
Quarter: 2007Q1

REPORT INFORMATION
  Report Type: 
  Country: None (occurrence: None)
  Receive Date: 20070320
  Receipt Date: 20070313
  Transmission Date: 20070707
  Serious: Yes (Life-Threatening, Hospitalization, Other)
  Sender: FDA-Public Use
  Company Number: PHBS2007BR04677

PATIENT
  Sex: Male
  Weight: 70 kg

DRUGS (2)
  1. TEGRETOL [Suspect]
     Indication: CEREBRAL DISORDER
     Dosage: 2 TABLETS OF 400 MG/DAY
     Route: 048
  2. DEPAKOTE [Concomitant]
     Indication: FEAR
     Dosage: 2 TABLETS/DAY
     Route: 048

REACTIONS (4)
  - BENIGN TUMOUR EXCISION [None]
  - BRAIN NEOPLASM [None]
  - CEREBROVASCULAR ACCIDENT [None]
  - DRUG INEFFECTIVE [None]
